FAERS Safety Report 12466631 (Version 1)
Quarter: 2016Q2

REPORT INFORMATION
  Report Type: Spontaneous
  Country: US (occurrence: US)
  Receive Date: 20160615
  Receipt Date: 20160615
  Transmission Date: 20160815
  Serious: No
  Sender: FDA-Public Use
  Company Number: US-BIOGEN-2016BI00248680

PATIENT
  Sex: Female

DRUGS (1)
  1. AVONEX [Suspect]
     Active Substance: INTERFERON BETA-1A
     Indication: MULTIPLE SCLEROSIS
     Route: 065
     Dates: start: 20030919

REACTIONS (10)
  - Temperature intolerance [Unknown]
  - Dysgraphia [Unknown]
  - Gait disturbance [Unknown]
  - Balance disorder [Unknown]
  - Multiple sclerosis [Unknown]
  - Feeling abnormal [Unknown]
  - General symptom [Unknown]
  - Panic reaction [Unknown]
  - Gastrointestinal sounds abnormal [Unknown]
  - Humidity intolerance [Unknown]
